FAERS Safety Report 9416993 (Version 1)
Quarter: 2013Q3

REPORT INFORMATION
  Report Type: Spontaneous
  Country: DE (occurrence: DE)
  Receive Date: 20130724
  Receipt Date: 20130724
  Transmission Date: 20140515
  Serious: Yes (Other)
  Sender: FDA-Public Use
  Company Number: PHHY2013DE076392

PATIENT
  Age: 71 Year
  Sex: Female

DRUGS (4)
  1. AMOXICILLIN-CLAVULANIC ACID [Suspect]
     Indication: BRONCHITIS
     Dosage: 1 DF, BID
  2. ACETYLSALICYLIC ACID [Interacting]
     Dosage: 100 MG, DAILY
  3. SIMVASTATIN [Concomitant]
     Dosage: 20 MG, DAILY
  4. EZETIMIBE [Concomitant]
     Dosage: 10 MG, DAILY

REACTIONS (8)
  - Vestibular disorder [Unknown]
  - Gait disturbance [Unknown]
  - Balance disorder [Unknown]
  - Oscillopsia [Unknown]
  - Areflexia [Unknown]
  - Ataxia [Unknown]
  - Unresponsive to stimuli [Unknown]
  - Drug interaction [Unknown]
